FAERS Safety Report 10237706 (Version 2)
Quarter: 2014Q2

REPORT INFORMATION
  Report Type: Spontaneous
  Country: FR (occurrence: FR)
  Receive Date: 20140616
  Receipt Date: 20140616
  Transmission Date: 20141212
  Serious: Yes (Death)
  Sender: FDA-Public Use
  Company Number: FR-009507513-1406FRA005061

PATIENT
  Age: 46 Year
  Sex: Male
  Weight: 92 kg

DRUGS (3)
  1. VICTRELIS [Suspect]
     Indication: PRODUCT USED FOR UNKNOWN INDICATION
     Dosage: UNK
     Route: 048
     Dates: start: 20110708, end: 20120523
  2. VIRAFERONPEG [Suspect]
     Dosage: UNK
     Dates: start: 20110610, end: 20120523
  3. REBETOL [Suspect]
     Dosage: UNK
     Dates: start: 20110610, end: 20120523

REACTIONS (1)
  - Completed suicide [Fatal]
